FAERS Safety Report 11863372 (Version 2)
Quarter: 2016Q1

REPORT INFORMATION
  Report Type: Report from Study
  Country: US (occurrence: US)
  Receive Date: 20151223
  Receipt Date: 20160127
  Transmission Date: 20160526
  Serious: No
  Sender: FDA-Public Use
  Company Number: US-AMGEN-USASL2015134908

PATIENT
  Age: 52 Year
  Sex: Female

DRUGS (2)
  1. ENBREL [Suspect]
     Active Substance: ETANERCEPT
     Indication: RHEUMATOID ARTHRITIS
  2. ENBREL [Suspect]
     Active Substance: ETANERCEPT
     Indication: PSORIASIS
     Dosage: 50 MG, 2 TIMES/WK (TWICE PER WEEK)
     Route: 065
     Dates: start: 201508, end: 201510

REACTIONS (3)
  - Depression [Recovered/Resolved]
  - Injection site plaque [Unknown]
  - Skin plaque [Unknown]

NARRATIVE: CASE EVENT DATE: 2015
